FAERS Safety Report 4523978-4 (Version None)
Quarter: 2004Q4

REPORT INFORMATION
  Report Type: 
  Country: None (occurrence: None)
  Receive Date: 20041210
  Receipt Date: 20040920
  Transmission Date: 20050328
  Serious: Yes (Hospitalization)
  Sender: FDA-Public Use
  Company Number: FR-ABBOTT-04P-056-0273946-00

PATIENT
  Sex: Female

DRUGS (2)
  1. DEPAKOTE [Suspect]
     Indication: AFFECTIVE DISORDER
     Dosage: 500 TO 1000 MG DAILY
     Route: 048
     Dates: start: 20020315
  2. FLUINDIONE [Interacting]
     Indication: CEREBRAL ARTERY EMBOLISM
     Dates: start: 20040801

REACTIONS (5)
  - CEREBRAL ARTERY EMBOLISM [None]
  - CEREBROVASCULAR ACCIDENT [None]
  - DRUG INTERACTION [None]
  - HEADACHE [None]
  - PARAESTHESIA ORAL [None]
